FAERS Safety Report 22541470 (Version 8)
Quarter: 2024Q1

REPORT INFORMATION
  Report Type: Spontaneous
  Country: IT (occurrence: IT)
  Receive Date: 20230609
  Receipt Date: 20240124
  Transmission Date: 20240410
  Serious: Yes (Hospitalization, Other)
  Sender: FDA-Public Use
  Company Number: IT-OTSUKA-2023_013306

PATIENT
  Age: 16 Year
  Sex: Female

DRUGS (14)
  1. DULOXETINE [Interacting]
     Active Substance: DULOXETINE
     Indication: Sleep disorder
     Dosage: 60 MILLIGRAM, QD
     Route: 065
  2. DULOXETINE [Interacting]
     Active Substance: DULOXETINE
     Indication: Autism spectrum disorder
     Dosage: 120MG, QD(RECEIVED 60MG FOR 5 MONTHS AND 120 MG)
     Route: 065
  3. DULOXETINE [Interacting]
     Active Substance: DULOXETINE
     Indication: Major depression
  4. DULOXETINE [Interacting]
     Active Substance: DULOXETINE
     Indication: Sleep disorder
  5. MIRTAZAPINE [Interacting]
     Active Substance: MIRTAZAPINE
     Indication: Sleep disorder
     Dosage: 30 MILLIGRAM, QD (30 MG, DAILY)
     Route: 065
  6. MIRTAZAPINE [Interacting]
     Active Substance: MIRTAZAPINE
     Indication: Autism spectrum disorder
     Dosage: 15 MG, QD (RECEIVED 30 MG (FOR 13 DAYS))
     Route: 065
  7. MIRTAZAPINE [Interacting]
     Active Substance: MIRTAZAPINE
     Indication: Major depression
  8. ARIPIPRAZOLE [Interacting]
     Active Substance: ARIPIPRAZOLE
     Indication: Autism spectrum disorder
     Dosage: 15 MILLIGRAM, QD (15 MG, DAILY)
     Route: 065
  9. ARIPIPRAZOLE [Interacting]
     Active Substance: ARIPIPRAZOLE
     Indication: Major depression
  10. SERTRALINE [Suspect]
     Active Substance: SERTRALINE HYDROCHLORIDE
     Indication: Major depression
     Dosage: 200 MG, QD,UP TO 200 MG DAILY
     Route: 065
  11. FLUOXETINE [Suspect]
     Active Substance: FLUOXETINE HYDROCHLORIDE
     Indication: Major depression
     Dosage: 40 MILLIGRAM, QD
     Route: 065
  12. FLUOXETINE [Suspect]
     Active Substance: FLUOXETINE HYDROCHLORIDE
     Dosage: 20 MILLIGRAM, QD
     Route: 065
  13. LITHIUM [Interacting]
     Active Substance: LITHIUM
     Indication: Autism spectrum disorder
     Dosage: 12 MILLIMOLE, QD (12 MMOL DAILY)
     Route: 065
  14. LITHIUM [Interacting]
     Active Substance: LITHIUM
     Indication: Major depression
     Dosage: UNK
     Route: 065

REACTIONS (9)
  - Vision blurred [Unknown]
  - Electrocardiogram repolarisation abnormality [Unknown]
  - Depression [Unknown]
  - Therapy non-responder [Unknown]
  - Drug ineffective [Recovering/Resolving]
  - Drug interaction [Unknown]
  - Drug ineffective for unapproved indication [Unknown]
  - Treatment failure [Unknown]
  - Off label use [Unknown]
